FAERS Safety Report 6695861-X (Version None)
Quarter: 2010Q2

REPORT INFORMATION
  Report Type: 
  Country: None (occurrence: None)
  Receive Date: 20100426
  Receipt Date: 20090624
  Transmission Date: 20101027
  Serious: No
  Sender: FDA-Public Use
  Company Number: A0793524A

PATIENT
  Age: 16 Year
  Sex: Female

DRUGS (4)
  1. ZOFRAN [Suspect]
     Indication: CHEMOTHERAPY
     Dosage: 32MG FIVE TIMES PER WEEK
     Route: 042
     Dates: start: 20090623
  2. HYDROXYZINE [Concomitant]
  3. ETOPOSIDE [Concomitant]
  4. IFOSFAMIDE [Concomitant]

REACTIONS (1)
  - VISION BLURRED [None]
